FAERS Safety Report 13886147 (Version 2)
Quarter: 2017Q3

REPORT INFORMATION
  Report Type: Spontaneous
  Country: TR (occurrence: TR)
  Receive Date: 20170821
  Receipt Date: 20170822
  Transmission Date: 20171127
  Serious: Yes (Hospitalization)
  Sender: FDA-Public Use
  Company Number: TR-ROCHE-1979648

PATIENT
  Age: 3 Year
  Sex: Male
  Weight: 17 kg

DRUGS (1)
  1. ZELBORAF [Suspect]
     Active Substance: VEMURAFENIB
     Indication: MALIGNANT MELANOMA
     Route: 048
     Dates: start: 20170810, end: 20170815

REACTIONS (2)
  - Eyelid contusion [Recovering/Resolving]
  - Erythema of eyelid [Recovering/Resolving]

NARRATIVE: CASE EVENT DATE: 20170811
